FAERS Safety Report 13213852 (Version 1)
Quarter: 2017Q1

REPORT INFORMATION
  Report Type: Spontaneous
  Country: US (occurrence: US)
  Receive Date: 20170210
  Receipt Date: 20170210
  Transmission Date: 20170428
  Serious: No
  Sender: FDA-Public Use
  Company Number: US-GALDERMA-US16007586

PATIENT
  Age: 30 Year
  Sex: Female

DRUGS (2)
  1. UNKNOWN ACNE PRODUCT [Concomitant]
     Indication: ACNE
     Route: 061
  2. EPIDUO FORTE [Suspect]
     Active Substance: ADAPALENE\BENZOYL PEROXIDE
     Indication: THERAPEUTIC SKIN CARE TOPICAL
     Dosage: 0.3%
     Route: 061
     Dates: start: 201610, end: 201610

REACTIONS (6)
  - Rash macular [Recovering/Resolving]
  - Skin burning sensation [Recovering/Resolving]
  - Skin discomfort [Recovering/Resolving]
  - Drug ineffective [Recovering/Resolving]
  - Dermatitis allergic [Recovering/Resolving]
  - Erythema [Recovering/Resolving]

NARRATIVE: CASE EVENT DATE: 201610
